FAERS Safety Report 13157379 (Version 1)
Quarter: 2017Q1

REPORT INFORMATION
  Report Type: Spontaneous
  Country: GB (occurrence: GB)
  Receive Date: 20170127
  Receipt Date: 20170127
  Transmission Date: 20170428
  Serious: Yes (Death, Other)
  Sender: FDA-Public Use
  Company Number: GB-009507513-1701GBR007723

PATIENT
  Age: 57 Year
  Sex: Male
  Weight: 80 kg

DRUGS (10)
  1. THIAMINE. [Concomitant]
     Active Substance: THIAMINE
  2. METHADONE HYDROCHLORIDE. [Concomitant]
     Active Substance: METHADONE HYDROCHLORIDE
  3. ACETAMINOPHEN. [Concomitant]
     Active Substance: ACETAMINOPHEN
     Route: 048
  4. SPIRONOLACTONE. [Concomitant]
     Active Substance: SPIRONOLACTONE
  5. HARVONI [Suspect]
     Active Substance: LEDIPASVIR\SOFOSBUVIR
     Indication: CHRONIC HEPATITIS C
     Dosage: SOFOSBUVIR 400 MG/LEDIPASVIR 90 MG COMBINATION, ONE DOSE DAILY
     Route: 048
     Dates: start: 20161216, end: 20161222
  6. CODEINE [Concomitant]
     Active Substance: CODEINE
  7. RANITIDINE. [Concomitant]
     Active Substance: RANITIDINE
  8. RIFAXIMIN [Concomitant]
     Active Substance: RIFAXIMIN
  9. RIBAVIRIN. [Suspect]
     Active Substance: RIBAVIRIN
     Indication: CHRONIC HEPATITIS C
     Dosage: 400 MG, TWICE A DAY
     Route: 048
     Dates: start: 20161216, end: 20161222
  10. GABAPENTIN. [Concomitant]
     Active Substance: GABAPENTIN

REACTIONS (3)
  - Haemorrhage [Fatal]
  - Infection [Fatal]
  - Disease complication [Not Recovered/Not Resolved]
